FAERS Safety Report 18216476 (Version 1)
Quarter: 2020Q3

REPORT INFORMATION
  Report Type: Spontaneous
  Country: GB (occurrence: GB)
  Receive Date: 20200901
  Receipt Date: 20200901
  Transmission Date: 20201103
  Serious: Yes (Hospitalization, Disabling, Other)
  Sender: FDA-Public Use
  Company Number: GB-TORRENT-00024000

PATIENT
  Age: 31 Year
  Sex: Female
  Weight: 69 kg

DRUGS (3)
  1. ESCITALOPRAM [Suspect]
     Active Substance: ESCITALOPRAM OXALATE
     Indication: ANXIETY
     Route: 048
     Dates: start: 20200606, end: 20200630
  2. KLONOPIN [Concomitant]
     Active Substance: CLONAZEPAM
     Indication: PRODUCT USED FOR UNKNOWN INDICATION
     Dosage: UNKNOWN
     Dates: start: 20200624
  3. HYDROXYZINE [Concomitant]
     Active Substance: HYDROXYZINE HYDROCHLORIDE
     Indication: PRODUCT USED FOR UNKNOWN INDICATION
     Dosage: UNKNOWN
     Dates: start: 20200718

REACTIONS (8)
  - Suicidal ideation [Recovering/Resolving]
  - Anxiety [Unknown]
  - Violence-related symptom [Unknown]
  - Mood altered [Unknown]
  - Emotional distress [Unknown]
  - Panic attack [Recovering/Resolving]
  - Intrusive thoughts [Unknown]
  - Fear [Recovering/Resolving]
